FAERS Safety Report 17581193 (Version 1)
Quarter: 2020Q1

REPORT INFORMATION
  Report Type: Spontaneous
  Country: US (occurrence: US)
  Receive Date: 20200325
  Receipt Date: 20200325
  Transmission Date: 20200409
  Serious: No
  Sender: FDA-Public Use
  Company Number: US-MELINTA THERAPEUTICS, INC-US-MLNT-20-00050

PATIENT
  Sex: Male

DRUGS (5)
  1. IMIPENEM [Concomitant]
     Active Substance: IMIPENEM
     Indication: BACTERIAL INFECTION
     Dosage: NOT PROVIDED.
  2. DAPTO [Concomitant]
     Indication: BACTERIAL INFECTION
     Dosage: NOT PROVIDED.
  3. VABOMERE [Suspect]
     Active Substance: MEROPENEM\VABORBACTAM
     Indication: OSTEOMYELITIS BACTERIAL
     Route: 042
     Dates: start: 20190529, end: 20190710
  4. CEFEPIME [Concomitant]
     Active Substance: CEFEPIME HYDROCHLORIDE
     Indication: BACTERIAL INFECTION
     Dosage: NOT PROVIDED.
  5. LEVOFLOXACIN. [Concomitant]
     Active Substance: LEVOFLOXACIN
     Indication: BACTERIAL INFECTION
     Dosage: NOT PROVIDED.

REACTIONS (3)
  - Drug effective for unapproved indication [Unknown]
  - Off label use [Unknown]
  - Diarrhoea [Unknown]
